FAERS Safety Report 11705323 (Version 2)
Quarter: 2016Q1

REPORT INFORMATION
  Report Type: Spontaneous
  Country: JP (occurrence: JP)
  Receive Date: 20151106
  Receipt Date: 20160217
  Transmission Date: 20160525
  Serious: Yes (Death, Other)
  Sender: FDA-Public Use
  Company Number: JP-ACTELION-A-CH2015-126564

PATIENT
  Age: 46 Year
  Sex: Male

DRUGS (12)
  1. EPOPROSTENOL ACT [Suspect]
     Active Substance: EPOPROSTENOL
     Indication: PULMONARY ARTERIAL HYPERTENSION
     Dosage: 32.2 NG/KG, PER MIN
     Route: 042
     Dates: start: 20131010
  2. TRACLEER [Suspect]
     Active Substance: BOSENTAN
     Indication: PULMONARY ARTERIAL HYPERTENSION
     Dosage: 62.5 MG, BID
     Route: 048
  3. EPOPROSTENOL ACT [Suspect]
     Active Substance: EPOPROSTENOL
     Dosage: 43.0 NG/KG, PER MIN
     Route: 042
     Dates: start: 20140812
  4. WARFARIN [Concomitant]
     Active Substance: WARFARIN
  5. FUROSEMIDE. [Concomitant]
     Active Substance: FUROSEMIDE
  6. EPOPROSTENOL ACT [Suspect]
     Active Substance: EPOPROSTENOL
     Dosage: 36.6 NG/KG, PER MIN
     Route: 042
     Dates: start: 20140311
  7. DIGOXIN. [Concomitant]
     Active Substance: DIGOXIN
  8. EPOPROSTENOL ACT [Suspect]
     Active Substance: EPOPROSTENOL
     Dosage: 34.4 NG/KG, PER MIN
     Route: 042
     Dates: start: 20131212
  9. EPOPROSTENOL ACT [Suspect]
     Active Substance: EPOPROSTENOL
     Dosage: 40.3 NG/KG, PER MIN
     Route: 042
     Dates: start: 20140709
  10. SILDENAFIL. [Concomitant]
     Active Substance: SILDENAFIL
  11. EPOPROSTENOL ACT [Suspect]
     Active Substance: EPOPROSTENOL
     Dosage: 38.7 NG/KG, PER MIN
     Route: 042
     Dates: start: 20140620
  12. OXYGEN. [Concomitant]
     Active Substance: OXYGEN

REACTIONS (6)
  - Cyanosis [Not Recovered/Not Resolved]
  - Concomitant disease aggravated [Not Recovered/Not Resolved]
  - Right-to-left cardiac shunt [Not Recovered/Not Resolved]
  - Platelet count decreased [Not Recovered/Not Resolved]
  - Cardiac failure [Fatal]
  - PO2 abnormal [Not Recovered/Not Resolved]
